FAERS Safety Report 7781136-4 (Version None)
Quarter: 2011Q3

REPORT INFORMATION
  Report Type: 
  Country: None (occurrence: None)
  Receive Date: 20110927
  Receipt Date: 20110922
  Transmission Date: 20111222
  Serious: Yes (Death)
  Sender: FDA-Public Use
  Company Number: PHEH2011US04929

PATIENT
  Sex: Female
  Weight: 47.619 kg

DRUGS (15)
  1. LEVEMIR [Concomitant]
     Dosage: 17.0 U/ML, UNK
  2. ACYCLOVIR [Concomitant]
     Dosage: 200 MG, BID
  3. LEVOTHYROXINE SODIUM [Concomitant]
     Dosage: 100 MCG DAILY
     Route: 048
  4. FLUCONAZOLE [Concomitant]
     Dosage: 200 MG, DAILY
     Route: 048
     Dates: start: 20091109
  5. DIOVAN [Concomitant]
     Dosage: 320 MG DAILY
     Route: 048
  6. LEXAPRO [Concomitant]
     Dosage: 10 MG, DAILY
     Route: 048
     Dates: start: 20091109
  7. EXJADE [Suspect]
     Indication: MYELOID LEUKAEMIA
     Dosage: 1000 MG, DAILY
     Route: 048
     Dates: start: 20091106
  8. CIPROX [Concomitant]
     Dosage: 250 MG, BID
     Route: 048
     Dates: start: 20091109
  9. VFEND [Concomitant]
     Dosage: 200 MG, BID
     Route: 048
  10. LORAZEPAM [Concomitant]
     Dosage: 1 MG,
     Dates: start: 20091109
  11. LEVAQUIN [Concomitant]
     Dosage: 500 MG, DAILY
     Route: 048
  12. METFORMIN HCL [Concomitant]
     Dosage: UNK
     Dates: start: 20091109
  13. ACTONEL [Concomitant]
     Dosage: 35 MG, QW
     Dates: start: 20091109
  14. HUMALOG [Concomitant]
     Dosage: 12 U/ML, TID
     Dates: start: 20110819
  15. ATENOLOL [Concomitant]
     Dosage: 25 MG, DAILY
     Route: 048
     Dates: start: 20091109

REACTIONS (1)
  - DEATH [None]
